FAERS Safety Report 4877264-3 (Version None)
Quarter: 2006Q1

REPORT INFORMATION
  Report Type: 
  Country: None (occurrence: None)
  Receive Date: 20060109
  Receipt Date: 20060109
  Transmission Date: 20060701
  Serious: Yes (Hospitalization, Disabling)
  Sender: FDA-Public Use
  Company Number: None

PATIENT
  Age: 57 Year
  Sex: Female

DRUGS (9)
  1. AVELOX [Suspect]
     Indication: BRONCHIECTASIS
     Dosage: 400 MG 3X /WK PO
     Route: 048
     Dates: start: 20050808, end: 20050831
  2. CIPRO [Suspect]
     Indication: URINARY TRACT INFECTION
     Dosage: 500 MG PO BID
     Route: 048
     Dates: start: 20050830, end: 20050831
  3. VICODIN [Concomitant]
  4. ZITHROMAX [Concomitant]
  5. FLEXERIL [Concomitant]
  6. PPHRENILIN [Concomitant]
  7. ALPHEX [Concomitant]
  8. SUCRALFATE [Concomitant]
  9. NAPROXEN [Concomitant]

REACTIONS (5)
  - ABDOMINAL PAIN [None]
  - DIFFICULTY IN WALKING [None]
  - HYPOAESTHESIA [None]
  - PAIN IN EXTREMITY [None]
  - WEIGHT DECREASED [None]
